FAERS Safety Report 10800245 (Version 6)
Quarter: 2016Q2

REPORT INFORMATION
  Report Type: Report from Study
  Country: BR (occurrence: BR)
  Receive Date: 20150216
  Receipt Date: 20160425
  Transmission Date: 20160815
  Serious: Yes (Other)
  Sender: FDA-Public Use
  Company Number: PHHY2015BR018264

PATIENT
  Age: 68 Year
  Sex: Female
  Weight: 63 kg

DRUGS (5)
  1. ACLASTA [Suspect]
     Active Substance: ZOLEDRONIC ACID
     Indication: OSTEOPOROSIS
     Dosage: 5 MG, Q12MO (1 VIAL PER YEAR)
     Route: 042
     Dates: start: 20130604
  2. CODATEN [Concomitant]
     Active Substance: CODEINE PHOSPHATE\DICLOFENAC SODIUM
     Indication: UPPER LIMB FRACTURE
  3. MIOCALVEN D [Concomitant]
     Indication: BLOOD CALCIUM ABNORMAL
     Dosage: 1 DF, QD
     Route: 048
  4. CODATEN [Concomitant]
     Active Substance: CODEINE PHOSPHATE\DICLOFENAC SODIUM
     Indication: SPINAL PAIN
     Dosage: 2 DF, QD (50 MG)
     Route: 048
     Dates: start: 2012
  5. NOEX [Concomitant]
     Active Substance: BUDESONIDE
     Indication: SINUSITIS
     Dosage: 50 MG, BID, 4 YEARS AGO
     Route: 048

REACTIONS (19)
  - Intervertebral disc protrusion [Unknown]
  - Swelling face [Unknown]
  - Spinal fracture [Recovered/Resolved]
  - Spinal osteoarthritis [Unknown]
  - Spinal compression fracture [Unknown]
  - Gastrointestinal disorder [Unknown]
  - Eye swelling [Unknown]
  - Rash macular [Not Recovered/Not Resolved]
  - Venous injury [Unknown]
  - Spinal deformity [Not Recovered/Not Resolved]
  - Bone pain [Unknown]
  - Malaise [Unknown]
  - Irritable bowel syndrome [Not Recovered/Not Resolved]
  - Intervertebral disc space narrowing [Recovering/Resolving]
  - Vertebral osteophyte [Unknown]
  - Pneumonia [Recovered/Resolved]
  - Weight decreased [Recovering/Resolving]
  - Spondylolisthesis [Unknown]
  - Lumbar vertebral fracture [Recovering/Resolving]

NARRATIVE: CASE EVENT DATE: 2013
